FAERS Safety Report 8957514 (Version 1)
Quarter: 2012Q4

REPORT INFORMATION
  Report Type: Report from Study
  Country: DE (occurrence: DE)
  Receive Date: 20121211
  Receipt Date: 20121211
  Transmission Date: 20130627
  Serious: Yes (Death, Hospitalization)
  Sender: FDA-Public Use
  Company Number: DE-CELGENEUS-062-21880-12111025

PATIENT
  Age: 67 Year
  Sex: Male

DRUGS (11)
  1. REVLIMID [Suspect]
     Indication: MULTIPLE MYELOMA
     Route: 048
     Dates: start: 20120123
  2. DEXAMETHASONE [Suspect]
     Indication: MULTIPLE MYELOMA
     Route: 048
     Dates: start: 20120123
  3. ETOPOSIDE [Suspect]
     Indication: MULTIPLE MYELOMA
     Route: 065
     Dates: start: 20120425, end: 20120427
  4. NEUPOGEN [Suspect]
     Indication: MULTIPLE MYELOMA
     Route: 058
     Dates: start: 20120429, end: 20120510
  5. CARBOPLATIN [Suspect]
     Indication: MULTIPLE MYELOMA
     Route: 065
     Dates: start: 20120425, end: 20120427
  6. ASPIRINE [Concomitant]
     Indication: DRUG USE FOR UNKNOWN INDICATION
     Dosage: 100 Milligram
     Route: 048
     Dates: start: 20120123, end: 20121028
  7. HYDROCHLOROTHIAZIDE [Concomitant]
     Indication: HYPERTENSION
     Dosage: 12.5 Milligram
     Route: 048
  8. CANDESARTAN [Concomitant]
     Indication: HYPERTENSION
     Dosage: 16 Milligram
     Route: 048
  9. DOXAZOSIN [Concomitant]
     Indication: HYPERTENSION
     Dosage: 4 Milligram
     Route: 048
  10. NOVAMINSULFON [Concomitant]
     Indication: BONE PAIN
     Route: 065
     Dates: start: 201201
  11. ZOMETA [Concomitant]
     Indication: DRUG USE FOR UNKNOWN INDICATION
     Route: 041
     Dates: start: 201201

REACTIONS (1)
  - Ventricular arrhythmia [Fatal]
